FAERS Safety Report 7215733-1 (Version None)
Quarter: 2011Q1

REPORT INFORMATION
  Report Type: 
  Country: None (occurrence: None)
  Receive Date: 20110107
  Receipt Date: 20101227
  Transmission Date: 20110831
  Serious: Yes (Hospitalization)
  Sender: FDA-Public Use
  Company Number: FR-ELI_LILLY_AND_COMPANY-FR201012006094

PATIENT
  Sex: Female

DRUGS (8)
  1. ACETAMINOPHEN AND TRAMADOL HCL [Concomitant]
     Dosage: 37.5 MG, 2/D
     Route: 048
     Dates: end: 20100607
  2. IMOVANE [Concomitant]
     Dosage: 7.5 MG, DAILY (1/D)
     Route: 048
     Dates: end: 20100607
  3. TRIMEPRAZINE TARTRATE [Concomitant]
     Indication: INSOMNIA
     Dosage: 10 D/F, AS NEEDED
     Route: 048
     Dates: end: 20100607
  4. VALIUM [Concomitant]
     Dosage: UNK, AS NEEDED
     Route: 048
     Dates: end: 20100607
  5. OMEPRAZOLE [Concomitant]
     Dosage: 20 MG, DAILY (1/D)
     Route: 048
  6. ZYPREXA [Suspect]
     Dosage: 10 MG, DAILY (1/D)
     Route: 048
     Dates: end: 20100607
  7. ATENOLOL [Concomitant]
     Dosage: 50 MG, DAILY (1/D)
     Route: 048
  8. LEVOTHYROX [Concomitant]
     Dosage: 100 UG, DAILY (1/D)
     Route: 048

REACTIONS (9)
  - DISTURBANCE IN ATTENTION [None]
  - FALL [None]
  - SOMNOLENCE [None]
  - ECCHYMOSIS [None]
  - LEUKOCYTURIA [None]
  - PYREXIA [None]
  - URINARY TRACT INFECTION [None]
  - DISORIENTATION [None]
  - NITRITE URINE PRESENT [None]
